FAERS Safety Report 6605029-0 (Version None)
Quarter: 2010Q1

REPORT INFORMATION
  Report Type: 
  Country: None (occurrence: None)
  Receive Date: 20100226
  Receipt Date: 20100216
  Transmission Date: 20100710
  Serious: Yes (Other)
  Sender: FDA-Public Use
  Company Number: CA-GENENTECH-298401

PATIENT
  Sex: Male

DRUGS (7)
  1. MABTHERA [Suspect]
     Indication: NON-HODGKIN'S LYMPHOMA
     Dosage: 649 MG, UNK
     Route: 042
     Dates: start: 20081216, end: 20090101
  2. MABTHERA [Suspect]
     Dosage: 626 MG, UNK
     Route: 042
     Dates: start: 20090801, end: 20090801
  3. MABTHERA [Suspect]
     Dosage: 626 MG, UNK
     Route: 042
     Dates: start: 20091103, end: 20091103
  4. MABTHERA [Suspect]
     Dosage: 653 MG, UNK
     Route: 042
     Dates: start: 20100126, end: 20100126
  5. CYCLOPHOSPHAMIDE [Concomitant]
     Indication: NON-HODGKIN'S LYMPHOMA
     Dosage: UNK
     Dates: start: 20081216, end: 20090101
  6. VINCRISTINE [Concomitant]
     Indication: NON-HODGKIN'S LYMPHOMA
     Dosage: UNK
     Dates: start: 20081216, end: 20090101
  7. PREDNISONE [Concomitant]
     Indication: NON-HODGKIN'S LYMPHOMA
     Dosage: UNK
     Dates: start: 20081216, end: 20090101

REACTIONS (7)
  - BALANCE DISORDER [None]
  - CHILLS [None]
  - DIARRHOEA [None]
  - NAUSEA [None]
  - PALLOR [None]
  - URTICARIA [None]
  - VOMITING [None]
